FAERS Safety Report 9742042 (Version 3)
Quarter: 2014Q2

REPORT INFORMATION
  Report Type: Spontaneous
  Country: US (occurrence: US)
  Receive Date: 20131210
  Receipt Date: 20140602
  Transmission Date: 20141212
  Serious: Yes (Life-Threatening, Hospitalization)
  Sender: FDA-Public Use
  Company Number: US-BAYER-2013-148650

PATIENT
  Age: 36 Year
  Sex: Female
  Weight: 57.6 kg

DRUGS (11)
  1. MIRENA [Suspect]
     Dosage: 20 MCG/24HR, CONT
     Route: 015
     Dates: start: 20110203, end: 20120308
  2. PAROXETINE [Concomitant]
     Indication: POSTPARTUM DEPRESSION
     Dosage: UNK
     Dates: start: 2000
  3. LIPITOR [Concomitant]
     Indication: HYPERCHOLESTEROLAEMIA
     Dosage: UNK
     Dates: start: 2009
  4. LEVOCETIRIZINE [Concomitant]
     Indication: MULTIPLE ALLERGIES
     Dosage: UNK
     Dates: start: 2009
  5. MONTELUKAST [Concomitant]
     Indication: MULTIPLE ALLERGIES
     Dosage: UNK
     Dates: start: 2009
  6. PAXIL [Concomitant]
  7. IBUPROFEN [Concomitant]
  8. DETROL [Concomitant]
  9. PHENERGAN [Concomitant]
  10. VICODIN [Concomitant]
  11. ATIVAN [Concomitant]

REACTIONS (11)
  - Uterine perforation [None]
  - Device difficult to use [None]
  - Abdominal pain [None]
  - Injury [None]
  - General physical health deterioration [None]
  - Anxiety [None]
  - Anhedonia [None]
  - Infection [None]
  - Emotional distress [None]
  - Infertility [None]
  - Fear [None]
